FAERS Safety Report 13495130 (Version 1)
Quarter: 2017Q2

REPORT INFORMATION
  Report Type: Spontaneous
  Country: US (occurrence: US)
  Receive Date: 20170428
  Receipt Date: 20170428
  Transmission Date: 20170830
  Serious: No
  Sender: FDA-Public Use
  Company Number: US-BAYER-2017-080869

PATIENT
  Age: 90 Year
  Sex: Female
  Weight: 55 kg

DRUGS (3)
  1. CLARITIN [Suspect]
     Active Substance: LORATADINE
     Route: 048
     Dates: start: 20170426
  2. LETROZOLE. [Concomitant]
     Active Substance: LETROZOLE
  3. ATENOLOL. [Concomitant]
     Active Substance: ATENOLOL

REACTIONS (3)
  - Product use in unapproved indication [Unknown]
  - Memory impairment [None]
  - Headache [Unknown]

NARRATIVE: CASE EVENT DATE: 20170426
